FAERS Safety Report 14018833 (Version 4)
Quarter: 2018Q2

REPORT INFORMATION
  Report Type: Spontaneous
  Country: US (occurrence: US)
  Receive Date: 20170928
  Receipt Date: 20180530
  Transmission Date: 20180711
  Serious: No
  Sender: FDA-Public Use
  Company Number: US-PFIZER INC-2017417698

PATIENT
  Age: 65 Year
  Sex: Female
  Weight: 55 kg

DRUGS (8)
  1. PENTOXIFYLLIN [Concomitant]
     Active Substance: PENTOXIFYLLINE
     Indication: DENTAL DISORDER PROPHYLAXIS
     Dosage: 400 MG, 2X/DAY
  2. PERIDEX [Concomitant]
     Active Substance: CHLORHEXIDINE GLUCONATE
     Indication: DENTAL DISORDER PROPHYLAXIS
     Dosage: UNK, 1X/DAY (RINSE ONCE A DAY)
  3. NATURE MADE CALCIUM WITH VITAMIN D [Concomitant]
     Dosage: UNK, 2X/DAY,(CALCIUM 500 WITH VITAMIN D 400 IU)
  4. IBRANCE [Suspect]
     Active Substance: PALBOCICLIB
     Dosage: 75 MG, CYCLIC (DAILY FOR 21 DAYS ON AND 7 DAYS OFF)
     Route: 048
     Dates: start: 20170916, end: 20180523
  5. VITAMIN E [Concomitant]
     Active Substance: .ALPHA.-TOCOPHEROL
     Dosage: 1000 IU, 1X/DAY
  6. IBRANCE [Suspect]
     Active Substance: PALBOCICLIB
     Indication: BREAST CANCER METASTATIC
     Dosage: 125 MG, CYCLIC, (ONCE A DAY FOR 21 DAYS)
     Dates: start: 20170915, end: 20170926
  7. EXEMESTANE. [Concomitant]
     Active Substance: EXEMESTANE
     Indication: BREAST CANCER METASTATIC
     Dosage: 25 MG, DAILY (EVERY DAY)
     Dates: start: 20170916
  8. DIAZEPAM. [Concomitant]
     Active Substance: DIAZEPAM
     Indication: ANXIETY
     Dosage: 5 MG, AS NEEDED

REACTIONS (4)
  - Feeling jittery [Unknown]
  - White blood cell count decreased [Unknown]
  - Tremor [Unknown]
  - Neoplasm progression [Unknown]

NARRATIVE: CASE EVENT DATE: 20171004
